FAERS Safety Report 9325057 (Version 1)
Quarter: 2013Q2

REPORT INFORMATION
  Report Type: Spontaneous
  Country: JP (occurrence: JP)
  Receive Date: 20130603
  Receipt Date: 20130603
  Transmission Date: 20140414
  Serious: Yes (Other)
  Sender: FDA-Public Use
  Company Number: PHHY2013JP054557

PATIENT
  Age: 7 Year
  Sex: Male

DRUGS (2)
  1. PARACETAMOL [Suspect]
     Indication: INFLUENZA
     Route: 048
  2. OSELTAMIVIR [Concomitant]
     Indication: INFLUENZA

REACTIONS (7)
  - Acute generalised exanthematous pustulosis [Recovered/Resolved]
  - Rash [Recovered/Resolved]
  - Pruritus [Recovered/Resolved]
  - Pyrexia [Recovered/Resolved]
  - Rash erythematous [Recovered/Resolved]
  - Rash pustular [Recovered/Resolved]
  - Lymphadenopathy [Recovered/Resolved]
